FAERS Safety Report 8709345 (Version 2)
Quarter: 2012Q4

REPORT INFORMATION
  Report Type: Spontaneous
  Country: US (occurrence: None)
  Receive Date: 20120720
  Receipt Date: 20120827
  Transmission Date: 20130627
  Serious: Yes (Life-Threatening, Other)
  Sender: FDA-Public Use
  Company Number: 2012P1048746

PATIENT
  Age: 62 Year
  Sex: Female
  Weight: 62.14 kg

DRUGS (4)
  1. TWINJECT [Suspect]
     Indication: ALLERGY TO ARTHROPOD STING
     Dosage: X1
     Dates: start: 20120709, end: 20120709
  2. POTASSIUM CHLORIDE ER [Concomitant]
  3. PREDNISONE 10 MG [Concomitant]
  4. BENADRYL [Concomitant]

REACTIONS (15)
  - Drug dose omission [None]
  - Dysstasia [None]
  - Monoplegia [None]
  - Muscle spasms [None]
  - Economic problem [None]
  - Feeling abnormal [None]
  - Thinking abnormal [None]
  - Chest pain [None]
  - Cerebral disorder [None]
  - Cardiac disorder [None]
  - Post-traumatic stress disorder [None]
  - Hypokalaemia [None]
  - Blood glucose increased [None]
  - Device malfunction [None]
  - Refusal of treatment by patient [None]
